FAERS Safety Report 18547743 (Version 2)
Quarter: 2021Q1

REPORT INFORMATION
  Report Type: Report from Study
  Country: DE (occurrence: DE)
  Receive Date: 20201126
  Receipt Date: 20210107
  Transmission Date: 20210419
  Serious: Yes (Hospitalization)
  Sender: FDA-Public Use
  Company Number: DE-ROCHE-2714632

PATIENT
  Age: 60 Year
  Sex: Male
  Weight: 66 kg

DRUGS (10)
  1. DOCETAXEL. [Suspect]
     Active Substance: DOCETAXEL
     Indication: HER2 POSITIVE GASTRIC CANCER
     Route: 065
  2. LACTATED RINGERS SOLUTION [Concomitant]
     Active Substance: CALCIUM CHLORIDE\POTASSIUM CHLORIDE\SODIUM CHLORIDE\SODIUM LACTATE
     Dates: start: 20201113, end: 20201116
  3. TRASTUZUMAB. [Suspect]
     Active Substance: TRASTUZUMAB
     Indication: HER2 POSITIVE GASTRIC CANCER
     Dosage: MOST RECENT DOSE OF TRASTUZUMAB PRIOR TO SAE: 04/NOV/2020
     Route: 041
     Dates: start: 20201104, end: 20201104
  4. FLUOROURACIL. [Suspect]
     Active Substance: FLUOROURACIL
     Indication: HER2 POSITIVE GASTRIC CANCER
     Dosage: MOST RECENT DOSE OF FLUOROURACIL PRIOR TO SAE: 04/NOV/2020
     Route: 042
     Dates: start: 20201104
  5. METOCLOPRAMIDE. [Concomitant]
     Active Substance: METOCLOPRAMIDE
     Indication: NAUSEA
     Route: 042
     Dates: start: 20201113
  6. PIPERACILLIN/TAZOBACTAM [Concomitant]
     Active Substance: PIPERACILLIN SODIUM\TAZOBACTAM SODIUM
     Route: 042
     Dates: start: 20201113, end: 20201116
  7. NOVALGIN (METAMIZOLE SODIUM) [Concomitant]
     Active Substance: METAMIZOLE SODIUM
     Indication: PAIN
     Route: 042
     Dates: start: 20201113
  8. OXALIPLATIN. [Suspect]
     Active Substance: OXALIPLATIN
     Indication: HER2 POSITIVE GASTRIC CANCER
     Dosage: MOST RECENT DOSE OF OXALIPLATIN PRIOR TO SAE: 04/NOV/2020
     Route: 042
     Dates: start: 20201104
  9. SODIUM CHLORIDE IV [Concomitant]
     Active Substance: SODIUM CHLORIDE
     Dates: start: 20201113, end: 20201116
  10. LEUCOVORIN. [Suspect]
     Active Substance: LEUCOVORIN
     Indication: HER2 POSITIVE GASTRIC CANCER
     Route: 065
     Dates: start: 20201104

REACTIONS (1)
  - General physical health deterioration [Recovered/Resolved]

NARRATIVE: CASE EVENT DATE: 20201113
